FAERS Safety Report 11105088 (Version 2)
Quarter: 2018Q3

REPORT INFORMATION
  Report Type: Report from Study
  Country: DE (occurrence: DE)
  Receive Date: 20150511
  Receipt Date: 20180806
  Transmission Date: 20181010
  Serious: Yes (Hospitalization, Other)
  Sender: FDA-Public Use
  Company Number: DE-TAKEDA-2015TUS006238

PATIENT
  Age: 29 Year
  Sex: Female
  Weight: 55 kg

DRUGS (4)
  1. VEDOLIZUMAB [Suspect]
     Active Substance: VEDOLIZUMAB
     Indication: COLITIS ULCERATIVE
     Dosage: 300 MG, UNK
     Route: 065
     Dates: start: 20140722
  2. BLEMAREN [Concomitant]
     Dosage: 2 IU, QD
     Route: 065
  3. MESALAZINE [Concomitant]
     Active Substance: MESALAMINE
     Indication: COLITIS ULCERATIVE
     Dosage: 2000 MG, QD
     Route: 048
     Dates: start: 2013
  4. MESALAZINE [Concomitant]
     Active Substance: MESALAMINE
     Dosage: 4 G, QD
     Route: 054
     Dates: start: 2014

REACTIONS (1)
  - Pulmonary embolism [Recovered/Resolved]

NARRATIVE: CASE EVENT DATE: 20141118
